FAERS Safety Report 20559578 (Version 2)
Quarter: 2022Q1

REPORT INFORMATION
  Report Type: Spontaneous
  Country: FR (occurrence: FR)
  Receive Date: 20220307
  Receipt Date: 20220314
  Transmission Date: 20220423
  Serious: Yes (Hospitalization, Other)
  Sender: FDA-Public Use
  Company Number: None

PATIENT
  Age: 63 Year
  Sex: Female
  Weight: 67 kg

DRUGS (1)
  1. KENACORT [Suspect]
     Active Substance: TRIAMCINOLONE
     Indication: Tendonitis
     Dosage: 80MG/2ML 1 INJECTION
     Route: 030
     Dates: start: 20210118, end: 20210118

REACTIONS (12)
  - Insomnia [Recovered/Resolved]
  - Erythema [Recovered/Resolved]
  - Ageusia [Recovered/Resolved]
  - Primary adrenal insufficiency [Recovered/Resolved]
  - Dysphonia [Recovered/Resolved]
  - Hyperhidrosis [Recovered/Resolved]
  - Asthenia [Recovered/Resolved]
  - Dry mouth [Not Recovered/Not Resolved]
  - Vertigo [Recovered/Resolved]
  - Hot flush [Not Recovered/Not Resolved]
  - Paraesthesia oral [Recovered/Resolved]
  - Intentional product use issue [Unknown]

NARRATIVE: CASE EVENT DATE: 20210118
